FAERS Safety Report 9939502 (Version 1)
Quarter: 2014Q1

REPORT INFORMATION
  Report Type: Report from Study
  Country: US (occurrence: US)
  Receive Date: 20140303
  Receipt Date: 20140303
  Transmission Date: 20141002
  Serious: No
  Sender: FDA-Public Use
  Company Number: US-ABBVIE-13P-163-1033502-00

PATIENT
  Age: 48 Year
  Sex: Female

DRUGS (11)
  1. HUMIRA [Suspect]
     Indication: ANKYLOSING SPONDYLITIS
  2. DOXEPIN [Concomitant]
     Indication: PAIN
     Dosage: AT BEDTIME
  3. DOXEPIN [Concomitant]
     Indication: INSOMNIA
  4. DOXEPIN [Concomitant]
     Indication: DEPRESSION
  5. CYMBALTA [Concomitant]
     Indication: PAIN
     Dosage: AT BEDTIME
  6. CYMBALTA [Concomitant]
     Indication: INSOMNIA
  7. ATIVAN [Concomitant]
     Indication: ANXIETY
  8. ATIVAN [Concomitant]
     Indication: INSOMNIA
  9. PERCOCET [Concomitant]
     Indication: PAIN
  10. FENTANYL [Concomitant]
     Indication: PAIN
     Dosage: PATCH CHANGED EVERY 48 HOURS
  11. NEURONTIN [Concomitant]
     Indication: NEURALGIA

REACTIONS (6)
  - Device malfunction [Unknown]
  - Wrong technique in drug usage process [Unknown]
  - Wrong technique in drug usage process [Unknown]
  - Incorrect dose administered [Unknown]
  - Ocular hyperaemia [Unknown]
  - Lacrimation increased [Unknown]
